FAERS Safety Report 4550688-X (Version None)
Quarter: 2004Q4

REPORT INFORMATION
  Report Type: 
  Country: None (occurrence: None)
  Receive Date: 20041217
  Receipt Date: 20041027
  Transmission Date: 20050328
  Serious: No
  Sender: FDA-Public Use
  Company Number: 2004-BP-10870BP

PATIENT
  Sex: Female

DRUGS (8)
  1. SPIRIVA [Suspect]
     Indication: CHRONIC OBSTRUCTIVE AIRWAYS DISEASE
     Dosage: 18 MCG *18 MCG IH)
     Route: 055
     Dates: start: 20040801
  2. FLOMAX [Concomitant]
  3. EVISTA [Concomitant]
  4. ZOCOR [Concomitant]
  5. ACETYLSALICYLIC ACID SRT [Concomitant]
  6. ALBUTEROL [Concomitant]
  7. PREVACID [Concomitant]
  8. FLONASE [Concomitant]

REACTIONS (1)
  - DRUG INEFFECTIVE [None]
